FAERS Safety Report 17103740 (Version 3)
Quarter: 2020Q4

REPORT INFORMATION
  Report Type: Report from Study
  Country: KR (occurrence: KR)
  Receive Date: 20191203
  Receipt Date: 20201218
  Transmission Date: 20210113
  Serious: Yes (Hospitalization)
  Sender: FDA-Public Use
  Company Number: KR-ASTRAZENECA-2019SF71402

PATIENT
  Age: 749 Month
  Sex: Male

DRUGS (9)
  1. MINOCIN [Concomitant]
     Active Substance: MINOCYCLINE HYDROCHLORIDE
     Indication: C-REACTIVE PROTEIN INCREASED
     Route: 065
     Dates: start: 20190729, end: 20190902
  2. TAGRISSO [Suspect]
     Active Substance: OSIMERTINIB
     Indication: NON-SMALL CELL LUNG CANCER
     Route: 048
     Dates: start: 20190918, end: 20200106
  3. KABALIN [Concomitant]
     Indication: NEUROPATHY PERIPHERAL
     Route: 065
     Dates: start: 2019
  4. ESOMEZOL [Concomitant]
     Indication: PROPHYLAXIS AGAINST GASTROINTESTINAL ULCER
     Route: 065
     Dates: start: 2019
  5. DEXAMETHASONE BUKWANG [Concomitant]
     Indication: BRAIN OEDEMA
     Route: 065
     Dates: start: 20170719, end: 20190825
  6. TAGRISSO [Suspect]
     Active Substance: OSIMERTINIB
     Indication: NON-SMALL CELL LUNG CANCER
     Route: 048
     Dates: start: 20190729, end: 20190905
  7. KEPPRA [Concomitant]
     Active Substance: LEVETIRACETAM
     Indication: SEIZURE PROPHYLAXIS
     Route: 065
     Dates: start: 20190712
  8. TARGIN PR [Concomitant]
     Indication: CANCER PAIN
     Dosage: 5/2.5 MG
     Route: 065
     Dates: start: 2019
  9. MOTILITONE [Concomitant]
     Active Substance: HERBALS
     Indication: DYSPEPSIA
     Route: 065
     Dates: start: 2019

REACTIONS (2)
  - Drug-induced liver injury [Recovered/Resolved]
  - Asthenia [Recovered/Resolved]

NARRATIVE: CASE EVENT DATE: 20190902
